FAERS Safety Report 16826694 (Version 3)
Quarter: 2019Q4

REPORT INFORMATION
  Report Type: Spontaneous
  Country: GB (occurrence: GB)
  Receive Date: 20190919
  Receipt Date: 20191210
  Transmission Date: 20200122
  Serious: Yes (Hospitalization)
  Sender: FDA-Public Use
  Company Number: GB-MYLANLABS-2019M1087358

PATIENT
  Age: 18 Year
  Sex: Male

DRUGS (2)
  1. CLOZARIL [Suspect]
     Active Substance: CLOZAPINE
     Indication: SCHIZOPHRENIA
     Dosage: 350 MILLIGRAM, QD
     Route: 048
     Dates: start: 20190731
  2. CLOZARIL [Suspect]
     Active Substance: CLOZAPINE
     Dosage: 500 MILLIGRAM, AM
     Route: 048
     Dates: start: 20191030

REACTIONS (2)
  - Hospitalisation [Unknown]
  - Incorrect dose administered [Unknown]

NARRATIVE: CASE EVENT DATE: 20190823
